FAERS Safety Report 7822158-4 (Version None)
Quarter: 2011Q4

REPORT INFORMATION
  Report Type: 
  Country: None (occurrence: None)
  Receive Date: 20111018
  Receipt Date: 20101203
  Transmission Date: 20120403
  Serious: No
  Sender: FDA-Public Use
  Company Number: US-ASTRAZENECA-2010SE57412

PATIENT
  Sex: Male

DRUGS (7)
  1. SINGULAIR [Concomitant]
  2. ZYRTEC [Concomitant]
  3. IMITREX [Concomitant]
  4. SYMBICORT [Suspect]
     Dosage: 160/4.5 MCG 2 PUFFS
     Route: 055
  5. FLONASE [Concomitant]
  6. CLINDAMYCIN 1%TOPICAL SOLUTION [Concomitant]
  7. CLARITIN [Concomitant]

REACTIONS (1)
  - DYSPNOEA [None]
